FAERS Safety Report 8971672 (Version 1)
Quarter: 2012Q4

REPORT INFORMATION
  Report Type: 
  Country: JP (occurrence: JP)
  Receive Date: 20121217
  Receipt Date: 20121217
  Transmission Date: 20130627
  Serious: Yes (Death)
  Sender: FDA-Public Use
  Company Number: JP-ASTRAZENECA-2012SE93132

PATIENT
  Age: 77 Year
  Sex: Male
  Weight: 56 kg

DRUGS (9)
  1. NEXIUM [Suspect]
     Route: 048
     Dates: start: 20121115, end: 20121121
  2. PRAZAXA [Suspect]
     Indication: ATRIAL FIBRILLATION
     Route: 048
     Dates: start: 20121015, end: 20121121
  3. ERYTHROCIN [Concomitant]
     Dosage: Dose unknown
     Route: 065
  4. MUCODYNE [Concomitant]
     Dosage: Dose unknown
     Route: 065
  5. AMLODIN [Concomitant]
     Dosage: Dose unknown
     Route: 065
  6. LANIRAPID [Concomitant]
     Dosage: Dose unknown
     Route: 065
  7. DAIKENCHUTO [Concomitant]
     Dosage: Dose unknown
     Route: 048
  8. HOKUNALIN TAPE [Concomitant]
     Dosage: Dose unknown
     Route: 062
  9. SPIRIVA [Concomitant]
     Dosage: Dose unknown
     Route: 065

REACTIONS (1)
  - Interstitial lung disease [Fatal]
